FAERS Safety Report 6037255-6 (Version None)
Quarter: 2009Q1

REPORT INFORMATION
  Report Type: 
  Country: None (occurrence: None)
  Receive Date: 20090114
  Receipt Date: 20090109
  Transmission Date: 20090719
  Serious: Yes (Hospitalization)
  Sender: FDA-Public Use
  Company Number: A0731201A

PATIENT
  Age: 45 Year
  Sex: Male
  Weight: 88.6 kg

DRUGS (9)
  1. AVANDIA [Suspect]
     Dosage: 8MG PER DAY
     Route: 048
     Dates: start: 20030501, end: 20070518
  2. AVANDAMET [Suspect]
     Route: 048
     Dates: start: 20010101, end: 20030501
  3. METFORMIN HCL [Concomitant]
     Dates: start: 19990101
  4. INSULIN REGULAR [Concomitant]
     Dates: start: 20050901
  5. LANTUS [Concomitant]
     Dates: start: 20050901
  6. PROTONIX [Concomitant]
  7. PREVACID [Concomitant]
  8. BENICAR [Concomitant]
  9. VYTORIN [Concomitant]

REACTIONS (5)
  - ARTERIOSCLEROSIS CORONARY ARTERY [None]
  - CARDIAC DISORDER [None]
  - MYOCARDIAL INFARCTION [None]
  - MYOCARDIAL ISCHAEMIA [None]
  - PULMONARY HYPERTENSION [None]
